FAERS Safety Report 6574958-9 (Version None)
Quarter: 2010Q1

REPORT INFORMATION
  Report Type: 
  Country: None (occurrence: None)
  Receive Date: 20100209
  Receipt Date: 20100204
  Transmission Date: 20100710
  Serious: Yes (Life-Threatening)
  Sender: FDA-Public Use
  Company Number: PHHY2010JP06084

PATIENT
  Age: 34 Year
  Sex: Female

DRUGS (3)
  1. TEGRETOL [Suspect]
     Indication: EPILEPSY
     Dosage: 6800 MG
     Route: 048
  2. PHENOBAL [Suspect]
     Indication: EPILEPSY
     Dosage: 420 MG
     Route: 048
  3. MYSTAN [Suspect]
     Indication: EPILEPSY
     Dosage: UNK
     Route: 048

REACTIONS (1)
  - SUICIDE ATTEMPT [None]
